FAERS Safety Report 6045505-5 (Version None)
Quarter: 2009Q1

REPORT INFORMATION
  Report Type: 
  Country: None (occurrence: None)
  Receive Date: 20090121
  Receipt Date: 20090116
  Transmission Date: 20090719
  Serious: Yes (Hospitalization)
  Sender: FDA-Public Use
  Company Number: A0763980A

PATIENT
  Age: 73 Year
  Sex: Male

DRUGS (9)
  1. ZANTAC [Suspect]
     Indication: DRUG USE FOR UNKNOWN INDICATION
     Dosage: 50MG PER DAY
     Route: 042
  2. LIPITOR [Suspect]
     Indication: DRUG USE FOR UNKNOWN INDICATION
     Dosage: 20MG PER DAY
     Route: 048
  3. ETHANOL [Concomitant]
     Route: 065
  4. FENTANYL CITRATE [Concomitant]
     Route: 065
  5. HUMULIN R [Concomitant]
     Route: 042
  6. LEVOPHED [Concomitant]
     Route: 065
  7. MEROPENEM [Concomitant]
     Route: 042
  8. THIAMINE HCL [Concomitant]
     Route: 042
  9. WINE [Concomitant]
     Route: 065

REACTIONS (1)
  - HYPERBILIRUBINAEMIA [None]
